FAERS Safety Report 15003775 (Version 1)
Quarter: 2018Q3

REPORT INFORMATION
  Report Type: Spontaneous
  Country: US (occurrence: US)
  Receive Date: 20180613
  Receipt Date: 20180613
  Transmission Date: 20181010
  Serious: No
  Sender: FDA-Public Use
  Company Number: US-AUROBINDO-AUR-APU-2018-017348

PATIENT

DRUGS (1)
  1. SUMATRIPTAN INJECTION USP 6 MG/0.5 ML [Suspect]
     Active Substance: SUMATRIPTAN
     Indication: PRODUCT USED FOR UNKNOWN INDICATION
     Dosage: UNK
     Route: 042
     Dates: start: 20180325

REACTIONS (2)
  - Incorrect route of drug administration [None]
  - Incorrect route of drug administration [Unknown]
